FAERS Safety Report 6082888-4 (Version None)
Quarter: 2009Q1

REPORT INFORMATION
  Report Type: 
  Country: None (occurrence: None)
  Receive Date: 20090218
  Receipt Date: 20090212
  Transmission Date: 20090719
  Serious: Yes (Death, Hospitalization)
  Sender: FDA-Public Use
  Company Number: FR-WYE-G03113509

PATIENT
  Sex: Male

DRUGS (14)
  1. TAZOCILLINE [Suspect]
     Route: 042
     Dates: start: 20090108, end: 20090116
  2. FLAGYL [Suspect]
     Route: 042
     Dates: end: 20090111
  3. CANCIDAS [Suspect]
     Dates: start: 20090108, end: 20090119
  4. NEUPOGEN [Suspect]
     Route: 042
     Dates: start: 20081228
  5. NEXIUM [Suspect]
     Route: 042
  6. LEDERFOLIN [Concomitant]
     Dosage: UNKNOWN
     Route: 048
     Dates: start: 20090108
  7. OFLOCET [Suspect]
     Route: 042
     Dates: start: 20081228, end: 20090108
  8. AMBISOME [Suspect]
     Indication: PYREXIA
     Dosage: 50 MG STRENGTH; FREQUENCY UNSPECIFIED
     Route: 042
     Dates: start: 20081230, end: 20090107
  9. CALCIUM GLUCONATE [Suspect]
     Route: 042
  10. VANCOMYCIN HCL [Concomitant]
     Dosage: UNKNOWN
  11. MUCOMYST [Concomitant]
     Indication: PYREXIA
     Dosage: UNKNOWN
     Route: 048
  12. VITAMIN K [Concomitant]
     Dosage: UNKNOWN
     Dates: start: 20090108
  13. FORTUM [Suspect]
     Route: 042
     Dates: start: 20081228, end: 20090107
  14. PERFALGAN [Suspect]
     Dosage: 10 MG/ML; IN CASE OF PAIN
     Route: 042

REACTIONS (2)
  - CHOLESTASIS [None]
  - TRANSAMINASES INCREASED [None]
